FAERS Safety Report 19752536 (Version 1)
Quarter: 2021Q3

REPORT INFORMATION
  Report Type: Report from Study
  Country: US (occurrence: US)
  Receive Date: 20210826
  Receipt Date: 20210826
  Transmission Date: 20211014
  Serious: Yes (Other)
  Sender: FDA-Public Use
  Company Number: US-BAUSCH-BL-2021-028768

PATIENT
  Age: 62 Year
  Sex: Male

DRUGS (1)
  1. XIFAXAN [Suspect]
     Active Substance: RIFAXIMIN
     Indication: PRODUCT USED FOR UNKNOWN INDICATION
     Route: 065

REACTIONS (8)
  - Decreased appetite [Unknown]
  - Dyspepsia [Unknown]
  - Chest discomfort [Unknown]
  - Confusional state [Unknown]
  - Faeces discoloured [Unknown]
  - Medical procedure [Unknown]
  - Diarrhoea [Unknown]
  - Inability to afford medication [Unknown]
